FAERS Safety Report 10417496 (Version 7)
Quarter: 2015Q1

REPORT INFORMATION
  Report Type: Report from Study
  Country: US (occurrence: US)
  Receive Date: 20140829
  Receipt Date: 20150328
  Transmission Date: 20150720
  Serious: Yes (Hospitalization, Other)
  Sender: FDA-Public Use
  Company Number: US-BIOGENIDEC-2014BI083760

PATIENT
  Age: 28 Year
  Sex: Female
  Weight: 55 kg

DRUGS (30)
  1. BUDESONIDE. [Concomitant]
     Active Substance: BUDESONIDE
     Indication: PAIN
     Route: 048
  2. LEVOFLOXACIN. [Concomitant]
     Active Substance: LEVOFLOXACIN
     Route: 048
  3. MIDODRINE [Concomitant]
     Active Substance: MIDODRINE
     Route: 048
  4. LORAZEPAM. [Concomitant]
     Active Substance: LORAZEPAM
     Route: 048
     Dates: start: 20140820
  5. PROMETHAZINE [Concomitant]
     Active Substance: PROMETHAZINE\PROMETHAZINE HYDROCHLORIDE
     Route: 048
  6. METRONIDAZOLE. [Concomitant]
     Active Substance: METRONIDAZOLE
     Route: 048
  7. FENTANYL. [Concomitant]
     Active Substance: FENTANYL
  8. MIRENA [Concomitant]
     Active Substance: LEVONORGESTREL
     Route: 015
     Dates: start: 2010
  9. ONDANSETRON [Concomitant]
     Active Substance: ONDANSETRON
  10. FENTANYL. [Concomitant]
     Active Substance: FENTANYL
     Dosage: DOSE UNIT:1
  11. LORAZEPAM. [Concomitant]
     Active Substance: LORAZEPAM
     Route: 048
  12. TRAZODONE [Concomitant]
     Active Substance: TRAZODONE HYDROCHLORIDE
     Route: 048
  13. ACETAMINOPHEN. [Concomitant]
     Active Substance: ACETAMINOPHEN
     Route: 048
  14. FENTANYL. [Concomitant]
     Active Substance: FENTANYL
  15. ESCITALOPRAM [Concomitant]
     Active Substance: ESCITALOPRAM OXALATE
     Route: 048
  16. GABAPENTIN. [Concomitant]
     Active Substance: GABAPENTIN
     Route: 048
  17. TYSABRI [Suspect]
     Active Substance: NATALIZUMAB
     Indication: CROHN^S DISEASE
     Route: 042
     Dates: start: 20140317, end: 20150130
  18. BUDESONIDE. [Concomitant]
     Active Substance: BUDESONIDE
     Indication: PAIN
     Route: 048
  19. METOPROLOL [Concomitant]
     Active Substance: METOPROLOL
     Route: 048
  20. PROMETHAZINE [Concomitant]
     Active Substance: PROMETHAZINE\PROMETHAZINE HYDROCHLORIDE
     Route: 048
  21. ACETAMINOPHEN. [Concomitant]
     Active Substance: ACETAMINOPHEN
     Route: 048
  22. GABAPENTIN. [Concomitant]
     Active Substance: GABAPENTIN
     Route: 048
  23. FENTANYL. [Concomitant]
     Active Substance: FENTANYL
     Route: 062
  24. FENTANYL. [Concomitant]
     Active Substance: FENTANYL
     Route: 062
     Dates: start: 20140820
  25. ESCITALOPRAM [Concomitant]
     Active Substance: ESCITALOPRAM OXALATE
     Route: 048
  26. ONDANSETRON [Concomitant]
     Active Substance: ONDANSETRON
     Route: 048
  27. ACETAMINOPHEN. [Concomitant]
     Active Substance: ACETAMINOPHEN
     Route: 048
  28. HYDROXYZINE [Concomitant]
     Active Substance: HYDROXYZINE\HYDROXYZINE HYDROCHLORIDE
     Route: 048
  29. CALCIUM [Concomitant]
     Active Substance: CALCIUM
     Route: 048
     Dates: start: 20140820
  30. CYANOCOBALAMIN. [Concomitant]
     Active Substance: CYANOCOBALAMIN
     Route: 030

REACTIONS (1)
  - Enterocutaneous fistula [Recovered/Resolved]

NARRATIVE: CASE EVENT DATE: 20140812
